FAERS Safety Report 6969911-7 (Version None)
Quarter: 2010Q3

REPORT INFORMATION
  Report Type: 
  Country: None (occurrence: None)
  Receive Date: 20100908
  Receipt Date: 20100824
  Transmission Date: 20110219
  Serious: Yes (Life-Threatening, Hospitalization)
  Sender: FDA-Public Use
  Company Number: JP-BAYER-200913884BYL

PATIENT
  Age: 24 Year
  Sex: Male
  Weight: 73 kg

DRUGS (14)
  1. FLUDARA [Suspect]
     Indication: APLASTIC ANAEMIA
     Route: 065
     Dates: start: 20090211, end: 20090215
  2. THYMOGLOBULIN [Suspect]
     Indication: APLASTIC ANAEMIA
     Route: 065
     Dates: start: 20090201
  3. CYCLOPHOSPHAMIDE [Concomitant]
     Indication: UNRELATED DONOR BONE MARROW TRANSPLANTATION THERAPY
     Route: 065
     Dates: start: 20090214, end: 20090215
  4. CYCLOSPORINE [Concomitant]
     Indication: APLASTIC ANAEMIA
     Route: 042
     Dates: start: 20090219, end: 20090219
  5. METHYLPREDNISOLONE SODIUM SUCCINATE [Concomitant]
     Dates: start: 20090216, end: 20090219
  6. MEROPENEM TRIHYDRATE [Concomitant]
     Dates: start: 20090209, end: 20090324
  7. VANCOMYCIN HCL [Concomitant]
     Dates: start: 20090210, end: 20090318
  8. LANSOPRAZOLE [Concomitant]
     Route: 048
     Dates: start: 20090219, end: 20090225
  9. VALACYCLOVIR [Concomitant]
     Route: 048
     Dates: start: 20090217, end: 20090225
  10. VORICONAZOLE [Concomitant]
     Route: 048
     Dates: start: 20090219, end: 20090225
  11. ZOLPIDEM TARTRATE [Concomitant]
     Route: 048
     Dates: start: 20090218, end: 20090219
  12. MAGNESIUM OXIDE [Concomitant]
     Route: 048
     Dates: start: 20090218, end: 20090201
  13. CHLORPHENIRAMINE MALEATE [Concomitant]
     Route: 042
     Dates: start: 20090220, end: 20090220
  14. HYDROCORTISONE SODIUM SUCCINATE [Concomitant]
     Dates: start: 20090220, end: 20090220

REACTIONS (6)
  - ENGRAFT FAILURE [None]
  - EPSTEIN-BARR VIRUS ASSOCIATED LYMPHOPROLIFERATIVE DISORDER [None]
  - LIVER DISORDER [None]
  - PLATELET COUNT DECREASED [None]
  - PYREXIA [None]
  - SERUM FERRITIN INCREASED [None]
